FAERS Safety Report 23822967 (Version 1)
Quarter: 2024Q2

REPORT INFORMATION
  Report Type: Report from Study
  Country: SE (occurrence: SE)
  Receive Date: 20240506
  Receipt Date: 20240506
  Transmission Date: 20240716
  Serious: Yes (Death, Other)
  Sender: FDA-Public Use
  Company Number: SE-JNJFOC-20240484989

PATIENT

DRUGS (8)
  1. TECVAYLI [Suspect]
     Active Substance: TECLISTAMAB-CQYV
     Indication: Plasma cell myeloma
     Dosage: STEP-UP PHASE?FIRST PRIMING DOSE
     Route: 058
  2. TECVAYLI [Suspect]
     Active Substance: TECLISTAMAB-CQYV
     Dosage: SECOND PRIMING DOSE
     Route: 058
  3. TECVAYLI [Suspect]
     Active Substance: TECLISTAMAB-CQYV
     Dosage: FIRST FULL DOSE
     Route: 058
  4. TECVAYLI [Suspect]
     Active Substance: TECLISTAMAB-CQYV
     Dosage: SECOND FULL DOSE
     Route: 058
  5. ELRANATAMAB [Suspect]
     Active Substance: ELRANATAMAB
     Indication: Plasma cell myeloma
     Dosage: STEP-UP PHASE?FIRST PRIMING DOSE
     Route: 065
  6. ELRANATAMAB [Suspect]
     Active Substance: ELRANATAMAB
     Dosage: SECOND PRIMING DOSE
     Route: 065
  7. ELRANATAMAB [Suspect]
     Active Substance: ELRANATAMAB
     Dosage: FIRST FULL DOSE
     Route: 065
  8. ELRANATAMAB [Suspect]
     Active Substance: ELRANATAMAB
     Dosage: SECOND FULL DOSE
     Route: 065

REACTIONS (27)
  - Infection [Fatal]
  - Sepsis [Fatal]
  - Renal failure [Unknown]
  - Immune effector cell-associated neurotoxicity syndrome [Unknown]
  - Cytokine release syndrome [Unknown]
  - Neuropathy peripheral [Unknown]
  - Pulmonary embolism [Unknown]
  - Neutropenia [Unknown]
  - Thrombocytopenia [Unknown]
  - Pneumonia [Unknown]
  - Pneumocystis jirovecii pneumonia [Unknown]
  - Pseudomonas infection [Unknown]
  - Pneumonia legionella [Unknown]
  - Cytomegalovirus infection reactivation [Unknown]
  - COVID-19 [Unknown]
  - Anaemia [Unknown]
  - Moraxella infection [Unknown]
  - Parvovirus B19 infection reactivation [Unknown]
  - Herpes zoster reactivation [Unknown]
  - Herpes simplex reactivation [Unknown]
  - Upper respiratory tract infection [Unknown]
  - Urinary tract infection [Unknown]
  - Fatigue [Unknown]
  - Dermatitis [Unknown]
  - Pyrexia [Unknown]
  - Diarrhoea [Unknown]
  - Rhinovirus infection [Unknown]
